FAERS Safety Report 7302939-6 (Version None)
Quarter: 2011Q1

REPORT INFORMATION
  Report Type: 
  Country: None (occurrence: None)
  Receive Date: 20110218
  Receipt Date: 20110214
  Transmission Date: 20110831
  Serious: Yes (Death, Life-Threatening)
  Sender: FDA-Public Use
  Company Number: DE-ASTRAZENECA-2011SE03723

PATIENT
  Age: 19805 Day
  Sex: Male

DRUGS (1)
  1. BRILIQUE [Suspect]
     Indication: MYOCARDIAL INFARCTION
     Route: 048
     Dates: start: 20110105

REACTIONS (2)
  - DEATH [None]
  - VENTRICULAR FIBRILLATION [None]
